FAERS Safety Report 4285178-5 (Version None)
Quarter: 2004Q1

REPORT INFORMATION
  Report Type: 
  Country: None (occurrence: None)
  Receive Date: 20040202
  Receipt Date: 20031222
  Transmission Date: 20041129
  Serious: Yes (Hospitalization)
  Sender: FDA-Public Use
  Company Number: 2003-BP-10786BP

PATIENT
  Age: 74 Year
  Sex: Male

DRUGS (14)
  1. MOBIC [Suspect]
     Indication: TENDONITIS
     Dosage: 7.5 MG (7.5 MG, 1 QD), PO
     Route: 048
     Dates: start: 20031201, end: 20031212
  2. INDOMETHACIN [Suspect]
  3. HYDROCHLOROTHIAZIDE [Concomitant]
  4. ENALAPRIL MALEATE [Concomitant]
  5. TOPROL-XL [Concomitant]
  6. DILTIAZEM [Concomitant]
  7. ACETYLSALICYLIC ACID SRT [Concomitant]
  8. ZOCOR [Concomitant]
  9. TEMAZEPAM [Concomitant]
  10. GLUCOSAMINE AND CHONDROITIN [Concomitant]
  11. VITAMIN C (ASCORBIC ACID) [Concomitant]
  12. VITAMIN B (VITAMIN B) [Concomitant]
  13. SAW PALMETTO (SERENOA REPENS) [Concomitant]
  14. STOOL SOFTENER (DOCUSATE SODIUM) [Concomitant]

REACTIONS (5)
  - CEREBROVASCULAR ACCIDENT [None]
  - MELAENA [None]
  - MUSCLE TIGHTNESS [None]
  - MYOCARDIAL INFARCTION [None]
  - SCAR [None]
